FAERS Safety Report 10689899 (Version 1)
Quarter: 2015Q1

REPORT INFORMATION
  Report Type: Spontaneous
  Country: US (occurrence: None)
  Receive Date: 20150102
  Receipt Date: 20150102
  Transmission Date: 20150720
  Serious: No
  Sender: FDA-Public Use
  Company Number: None

PATIENT
  Sex: Male

DRUGS (3)
  1. LIDOCAINE. [Suspect]
     Active Substance: LIDOCAINE
     Indication: EPICONDYLITIS
     Dosage: 1CC, INJECTION
     Dates: start: 20141105
  2. LIDOCAINE. [Suspect]
     Active Substance: LIDOCAINE
     Indication: PAIN
     Dosage: 1CC, INJECTION
     Dates: start: 20141105
  3. KENALOG [Suspect]
     Active Substance: TRIAMCINOLONE ACETONIDE

REACTIONS (1)
  - Blood glucose increased [None]

NARRATIVE: CASE EVENT DATE: 20141105
